FAERS Safety Report 10409126 (Version 1)
Quarter: 2014Q1

REPORT INFORMATION
  Report Type: Spontaneous
  Country: GB (occurrence: None)
  Receive Date: 20131031
  Receipt Date: 20131031
  Transmission Date: 20141002
  Serious: Yes (Other)
  Sender: FDA-Public Use
  Company Number: 2012S1000125S

PATIENT
  Age: 92 Year
  Sex: Female
  Weight: 39 kg

DRUGS (2)
  1. KRYSTEXXA [Suspect]
     Indication: GOUT
     Route: 042
     Dates: start: 20121115, end: 20121115
  2. DIGOXIN [Concomitant]

REACTIONS (1)
  - Infusion related reaction [None]
